FAERS Safety Report 13863019 (Version 1)
Quarter: 2017Q3

REPORT INFORMATION
  Report Type: Other
  Country: None (occurrence: US)
  Receive Date: 20170814
  Receipt Date: 20170814
  Transmission Date: 20171127
  Serious: Yes (Other)
  Sender: FDA-Public Use
  Company Number: US-VELOXIS PHARMACEUTICALS-2024574

PATIENT
  Age: 62 Year
  Sex: Male

DRUGS (4)
  1. LEDIPASVIR W/SOFOSBUVIR [Suspect]
     Active Substance: LEDIPASVIR\SOFOSBUVIR
  2. RIBAVIRIN. [Suspect]
     Active Substance: RIBAVIRIN
  3. PREDNISONE. [Suspect]
     Active Substance: PREDNISONE
  4. ENVARSUS XR [Suspect]
     Active Substance: TACROLIMUS
     Indication: LIVER TRANSPLANT

REACTIONS (6)
  - Weight increased [Recovered/Resolved]
  - Nephrotic syndrome [Recovered/Resolved]
  - End stage renal disease [Recovered/Resolved]
  - Focal segmental glomerulosclerosis [Recovered/Resolved]
  - Proteinuria [Recovered/Resolved]
  - Oedema [Recovered/Resolved]
